FAERS Safety Report 7416441-4 (Version None)
Quarter: 2011Q2

REPORT INFORMATION
  Report Type: 
  Country: None (occurrence: None)
  Receive Date: 20110414
  Receipt Date: 20110412
  Transmission Date: 20111010
  Serious: Yes (Other)
  Sender: FDA-Public Use
  Company Number: US-GILEAD-2011-0036216

PATIENT
  Age: 66 Year
  Sex: Female

DRUGS (2)
  1. REVATIO [Concomitant]
     Indication: PULMONARY HYPERTENSION
  2. LETAIRIS [Suspect]
     Indication: PULMONARY HYPERTENSION
     Route: 048
     Dates: start: 20080309, end: 20110131

REACTIONS (1)
  - CATHETERISATION CARDIAC [None]
